FAERS Safety Report 14115598 (Version 1)
Quarter: 2017Q4

REPORT INFORMATION
  Report Type: Spontaneous
  Country: US (occurrence: US)
  Receive Date: 20171023
  Receipt Date: 20171023
  Transmission Date: 20180321
  Serious: No
  Sender: FDA-Public Use
  Company Number: US-BAYER-2017-202840

PATIENT
  Sex: Female

DRUGS (1)
  1. MIRALAX [Suspect]
     Active Substance: POLYETHYLENE GLYCOL 3350
     Indication: THERAPEUTIC SKIN CARE TOPICAL
     Dosage: UNK
     Route: 048

REACTIONS (2)
  - Incorrect dose administered [Unknown]
  - Product use issue [Unknown]
